FAERS Safety Report 15309999 (Version 1)
Quarter: 2018Q3

REPORT INFORMATION
  Report Type: Spontaneous
  Country: SK (occurrence: SK)
  Receive Date: 20180823
  Receipt Date: 20180823
  Transmission Date: 20181010
  Serious: Yes (Hospitalization, Other)
  Sender: FDA-Public Use
  Company Number: SK-TEVA-2018-SK-946790

PATIENT
  Age: 48 Year
  Sex: Male

DRUGS (3)
  1. GENTAMYCIN [Concomitant]
     Active Substance: GENTAMICIN
  2. CLINDAMYCIN. [Suspect]
     Active Substance: CLINDAMYCIN
     Route: 065
  3. METRONIDAZOLE. [Concomitant]
     Active Substance: METRONIDAZOLE

REACTIONS (9)
  - Sepsis [Unknown]
  - Hepatic function abnormal [Recovered/Resolved]
  - Hepatitis [Recovered/Resolved]
  - Still^s disease [Recovered/Resolved]
  - Alanine aminotransferase increased [Recovered/Resolved]
  - Aspartate aminotransferase increased [Recovered/Resolved]
  - Serum ferritin increased [Recovered/Resolved]
  - Blood bilirubin abnormal [Recovered/Resolved]
  - Renal impairment [Recovered/Resolved]
